FAERS Safety Report 8015714-4 (Version None)
Quarter: 2011Q4

REPORT INFORMATION
  Report Type: 
  Country: None (occurrence: None)
  Receive Date: 20111230
  Receipt Date: 20111219
  Transmission Date: 20120403
  Serious: Yes (Other)
  Sender: FDA-Public Use
  Company Number: JP-NOVOPROD-340421

PATIENT

DRUGS (5)
  1. NORDITROPIN FLEXPRO [Suspect]
     Indication: GROWTH HORMONE DEFICIENCY
     Dosage: 0.5 MG, QD
     Route: 058
     Dates: start: 20110921
  2. SELBEX [Concomitant]
     Indication: HYPOPITUITARISM
     Dosage: 100 MG, QD
     Route: 048
     Dates: start: 20110501
  3. CORTRIL                            /00028601/ [Concomitant]
     Indication: HYPOPITUITARISM
     Dosage: 10 MG, QD
     Route: 048
     Dates: start: 20110413
  4. LEVOTHYROXINE SODIUM [Concomitant]
     Indication: HYPOPITUITARISM
     Dosage: 75 A?G, QD
     Route: 048
     Dates: start: 20110512
  5. ONEALFA [Concomitant]
     Indication: HYPOPITUITARISM
     Dosage: 0.5 A?G, QD
     Route: 048
     Dates: start: 20110501

REACTIONS (1)
  - EPILEPSY [None]
